FAERS Safety Report 8004341-0 (Version None)
Quarter: 2011Q4

REPORT INFORMATION
  Report Type: 
  Country: None (occurrence: None)
  Receive Date: 20111223
  Receipt Date: 20111221
  Transmission Date: 20120403
  Serious: No
  Sender: FDA-Public Use
  Company Number: US-BIOGENIDEC-2011BI048200

PATIENT
  Sex: Female

DRUGS (1)
  1. TYSABRI [Suspect]
     Indication: MULTIPLE SCLEROSIS
     Route: 042
     Dates: start: 20090519

REACTIONS (9)
  - DUPUYTREN'S CONTRACTURE [None]
  - UVEITIS [None]
  - BAND SENSATION [None]
  - HYPOTHYROIDISM [None]
  - MUSCULOSKELETAL DISORDER [None]
  - PARAESTHESIA [None]
  - MUSCULAR WEAKNESS [None]
  - IMMUNE SYSTEM DISORDER [None]
  - MUSCLE SPASTICITY [None]
